FAERS Safety Report 5468279-5 (Version None)
Quarter: 2007Q3

REPORT INFORMATION
  Report Type: 
  Country: None (occurrence: None)
  Receive Date: 20070926
  Receipt Date: 20070913
  Transmission Date: 20080115
  Serious: Yes (Life-Threatening, Hospitalization, Other)
  Sender: FDA-Public Use
  Company Number: DE-ELI_LILLY_AND_COMPANY-DE200708005336

PATIENT
  Age: 54 Year
  Sex: Female
  Weight: 70 kg

DRUGS (7)
  1. CYMBALTA [Suspect]
     Dosage: 720 MG, UNK
     Route: 048
  2. ZYPREXA [Suspect]
     Dosage: 720 MG, UNK
  3. BESPAR [Concomitant]
     Dosage: 180 MG, UNK
  4. LYRICA [Concomitant]
     Dosage: 900 MG, UNK
  5. NEUROCIL [Concomitant]
     Dosage: 2400 MG, UNK
  6. OMEPRAZOLE [Concomitant]
     Dosage: 240 MG, UNK
  7. ROHYPNOL [Concomitant]
     Dosage: 2 UNK, UNK

REACTIONS (3)
  - COMA [None]
  - INTENTIONAL OVERDOSE [None]
  - SUICIDE ATTEMPT [None]
